FAERS Safety Report 11396705 (Version 3)
Quarter: 2015Q4

REPORT INFORMATION
  Report Type: Spontaneous
  Country: JP (occurrence: JP)
  Receive Date: 20150819
  Receipt Date: 20151110
  Transmission Date: 20160304
  Serious: Yes (Hospitalization, Disabling, Other)
  Sender: FDA-Public Use
  Company Number: JP-GSKJP-JP2015JPN118009AA

PATIENT
  Age: 69 Year
  Sex: Female
  Weight: 42 kg

DRUGS (16)
  1. VINCRISTINE SULFATE. [Concomitant]
     Active Substance: VINCRISTINE SULFATE
  2. CYTARABINE. [Concomitant]
     Active Substance: CYTARABINE
  3. ZOVIRAX [Suspect]
     Active Substance: ACYCLOVIR
     Dosage: 200 MG, QD
     Route: 048
     Dates: start: 20150929
  4. RANITIDINE [Concomitant]
     Active Substance: RANITIDINE\RANITIDINE HYDROCHLORIDE
     Dosage: 150 MG, BID
     Dates: end: 20150818
  5. METHOTREXATE [Concomitant]
     Active Substance: METHOTREXATE
  6. DOXORUBICIN HYDROCHLORIDE. [Concomitant]
     Active Substance: DOXORUBICIN HYDROCHLORIDE
  7. ZOVIRAX [Suspect]
     Active Substance: ACYCLOVIR
     Dosage: 200 MG, QD
     Route: 048
     Dates: start: 20141219, end: 20150817
  8. DEXAMETHASONE. [Concomitant]
     Active Substance: DEXAMETHASONE
  9. MAXIPIME [Concomitant]
     Active Substance: CEFEPIME HYDROCHLORIDE
     Dosage: 2 G, BID
     Dates: start: 20150802, end: 20150809
  10. GLIMEPIRIDE. [Concomitant]
     Active Substance: GLIMEPIRIDE
  11. RITUXIMAB (GENETICAL RECOMBINATION) [Concomitant]
  12. ZOVIRAX [Suspect]
     Active Substance: ACYCLOVIR
     Dosage: 200 MG, QOD
     Route: 048
     Dates: start: 20150818
  13. CEFEPIME DIHYDROCHLORIDE [Suspect]
     Active Substance: CEFEPIME HYDROCHLORIDE
     Indication: FEBRILE NEUTROPENIA
     Dosage: 4 G, 1D
     Route: 041
     Dates: start: 20150731, end: 20150809
  14. JANUVIA [Concomitant]
     Active Substance: SITAGLIPTIN PHOSPHATE
     Dosage: UNK
     Dates: end: 20150813
  15. VANCOMYCIN [Suspect]
     Active Substance: VANCOMYCIN
     Indication: FEBRILE NEUTROPENIA
     Dosage: 1 G, BID
     Route: 041
     Dates: start: 20150803, end: 20150809
  16. CYCLOPHOSPHAMIDE. [Concomitant]
     Active Substance: CYCLOPHOSPHAMIDE

REACTIONS (6)
  - Blood urea increased [Recovering/Resolving]
  - Renal impairment [Recovering/Resolving]
  - Renal tubular necrosis [Recovered/Resolved with Sequelae]
  - Blood creatinine increased [Recovering/Resolving]
  - Glomerular filtration rate decreased [Recovering/Resolving]
  - Renal disorder [Recovered/Resolved with Sequelae]

NARRATIVE: CASE EVENT DATE: 20150813
